FAERS Safety Report 9921091 (Version 1)
Quarter: 2014Q1

REPORT INFORMATION
  Report Type: Report from Study
  Country: US (occurrence: US)
  Receive Date: 20140225
  Receipt Date: 20140225
  Transmission Date: 20141002
  Serious: Yes (Other)
  Sender: FDA-Public Use
  Company Number: US-ROCHE-1332491

PATIENT
  Age: 56 Year
  Sex: Female

DRUGS (18)
  1. LUCENTIS [Suspect]
     Indication: DIABETIC RETINAL OEDEMA
     Dosage: OS
     Route: 043
  2. LUCENTIS [Suspect]
     Indication: INTRAOCULAR LENS IMPLANT
     Dosage: 1 MG Q 5  TO 8 WEEK INTERVAL OS
     Route: 050
  3. LUCENTIS [Suspect]
     Indication: CATARACT NUCLEAR
  4. LUCENTIS [Suspect]
     Indication: DIABETIC RETINOPATHY
  5. LUCENTIS [Suspect]
     Indication: OCULAR HYPERTENSION
  6. LUCENTIS [Suspect]
     Indication: CUTIS LAXA
  7. AVASTIN [Suspect]
     Indication: DIABETIC RETINAL OEDEMA
     Route: 043
  8. AVASTIN [Suspect]
     Indication: INTRAOCULAR LENS IMPLANT
  9. AVASTIN [Suspect]
     Indication: CATARACT NUCLEAR
  10. AVASTIN [Suspect]
     Indication: DIABETIC RETINOPATHY
  11. AVASTIN [Suspect]
     Indication: OCULAR HYPERTENSION
  12. AVASTIN [Suspect]
     Indication: CUTIS LAXA
  13. BETOPTIC [Concomitant]
     Indication: OCULAR HYPERTENSION
  14. DUREZOL [Concomitant]
     Dosage: QD OD AT HS
     Route: 065
  15. ISTALOL [Concomitant]
     Dosage: 1/2% BID OD AT 0700
     Route: 065
  16. NEVANAC [Concomitant]
     Dosage: TID OD
     Route: 065
  17. TROPICAMIDE [Concomitant]
     Route: 065
  18. PHENYLEPHRINE [Concomitant]
     Route: 065

REACTIONS (4)
  - Cystoid macular oedema [Unknown]
  - Macular oedema [Unknown]
  - Visual acuity reduced [Unknown]
  - Visual impairment [Unknown]
